FAERS Safety Report 14149150 (Version 2)
Quarter: 2018Q4

REPORT INFORMATION
  Report Type: Report from Study
  Country: DE (occurrence: DE)
  Receive Date: 20171101
  Receipt Date: 20181119
  Transmission Date: 20190204
  Serious: Yes (Hospitalization)
  Sender: FDA-Public Use
  Company Number: PHHO2017DE014587

PATIENT
  Age: 79 Year
  Sex: Female
  Weight: 57 kg

DRUGS (1)
  1. AMN107 [Suspect]
     Active Substance: NILOTINIB
     Indication: CHRONIC MYELOID LEUKAEMIA
     Dosage: QD
     Route: 048
     Dates: start: 20150903

REACTIONS (2)
  - Acute myocardial infarction [Recovered/Resolved]
  - Peripheral vascular disorder [Recovered/Resolved]

NARRATIVE: CASE EVENT DATE: 20171004
